FAERS Safety Report 8795052 (Version 1)
Quarter: 2012Q4

REPORT INFORMATION
  Report Type: 
  Country: US (occurrence: US)
  Receive Date: 20120917
  Receipt Date: 20120917
  Transmission Date: 20130627
  Serious: No
  Sender: FDA-Public Use
  Company Number: US-ASTRAZENECA-2012SE65497

PATIENT
  Age: 34 Year
  Sex: Male
  Weight: 88.5 kg

DRUGS (4)
  1. QUETIAPINE [Suspect]
     Indication: INSOMNIA
     Route: 048
     Dates: start: 20120724
  2. QUETIAPINE [Suspect]
     Indication: BIPOLAR DISORDER
     Route: 048
     Dates: start: 20120724
  3. QUETIAPINE [Suspect]
     Indication: DEPRESSION
     Route: 048
     Dates: start: 20120724
  4. LISINOPRIL [Concomitant]
     Indication: HYPERTENSION
     Route: 048
     Dates: start: 2009

REACTIONS (5)
  - Libido decreased [Unknown]
  - Heat exhaustion [Unknown]
  - Night sweats [Unknown]
  - Therapeutic response unexpected [Unknown]
  - Dry mouth [Unknown]
